FAERS Safety Report 9239608 (Version 1)
Quarter: 2013Q2

REPORT INFORMATION
  Report Type: Report from Study
  Country: US (occurrence: US)
  Receive Date: 20130418
  Receipt Date: 20130418
  Transmission Date: 20140414
  Serious: No
  Sender: FDA-Public Use
  Company Number: US-009507513-1208USA009663

PATIENT
  Age: 49 Year
  Sex: Female

DRUGS (4)
  1. REBETOL [Suspect]
     Indication: CHRONIC HEPATITIS C
     Dosage: 1000 MG IN DIVIDED DOSE DAILY
     Route: 048
     Dates: start: 20120619, end: 20120807
  2. REBETOL [Suspect]
     Dosage: 600 MG, QD
     Route: 048
     Dates: start: 20120808
  3. PEGINTERFERON ALFA-2A [Suspect]
     Indication: CHRONIC HEPATITIS C
     Dosage: 180 MICROGRAM, QW
     Route: 058
     Dates: start: 20120619
  4. BOCEPREVIR [Suspect]
     Indication: CHRONIC HEPATITIS C

REACTIONS (5)
  - Anaemia [Unknown]
  - Nausea [Unknown]
  - Stomatitis [Unknown]
  - Pyrexia [Unknown]
  - Abdominal pain upper [Unknown]
